FAERS Safety Report 25653362 (Version 1)
Quarter: 2025Q3

REPORT INFORMATION
  Report Type: Report from Study
  Country: US (occurrence: US)
  Receive Date: 20250807
  Receipt Date: 20250807
  Transmission Date: 20251021
  Serious: Yes (Other)
  Sender: ROCHE
  Company Number: US-ROCHE-10000236753

PATIENT
  Age: 30 Year
  Sex: Female

DRUGS (8)
  1. OCRELIZUMAB [Suspect]
     Active Substance: OCRELIZUMAB
     Indication: Multiple sclerosis
     Dosage: DATE OF SECOND ADMINISTRATION: 31-AUG-2021.
     Route: 065
     Dates: start: 20210818
  2. OCRELIZUMAB [Suspect]
     Active Substance: OCRELIZUMAB
     Dosage: SUBSEQUENT DOSES OF OCRELIZUMAB: 22-AUG-2022, 21-FEB-2023, 22-AUG-2023, 29-FEB-2024 AND 07-SEP-2024,
     Route: 065
     Dates: start: 20220222
  3. CHOLECALCIFEROL [Concomitant]
     Active Substance: CHOLECALCIFEROL
     Dates: start: 20210607
  4. CEFDINIR [Concomitant]
     Active Substance: CEFDINIR
     Dates: start: 20230221
  5. ESCITALOPRAM OXALATE [Concomitant]
     Active Substance: ESCITALOPRAM OXALATE
     Dates: start: 20210510
  6. MODAFINIL [Concomitant]
     Active Substance: MODAFINIL
     Dates: start: 20220909
  7. ZOLPIDEM [Concomitant]
     Active Substance: ZOLPIDEM TARTRATE
     Dates: start: 20210605
  8. TERBINAFINE [Concomitant]
     Active Substance: TERBINAFINE
     Dates: start: 20230221

REACTIONS (2)
  - Abortion spontaneous [Unknown]
  - Maternal exposure before pregnancy [Unknown]

NARRATIVE: CASE EVENT DATE: 20241201
